FAERS Safety Report 4922410-6 (Version None)
Quarter: 2006Q1

REPORT INFORMATION
  Report Type: 
  Country: None (occurrence: None)
  Receive Date: 20060221
  Receipt Date: 20060210
  Transmission Date: 20060701
  Serious: Yes (Hospitalization)
  Sender: FDA-Public Use
  Company Number: 2006008940

PATIENT
  Age: 63 Year
  Sex: Male

DRUGS (4)
  1. CELEBREX [Suspect]
     Indication: MUSCULOSKELETAL PAIN
     Dosage: 200 MG (200 MG, 1 IN 1 D), ORAL
     Route: 048
     Dates: start: 20010501, end: 20040301
  2. FLUCONAZOLE [Suspect]
     Indication: ILL-DEFINED DISORDER
     Dosage: (1 IN 1 D), ORAL
     Route: 048
  3. DILTIAZEM [Suspect]
     Indication: ILL-DEFINED DISORDER
     Dosage: 200 MG (200 MG, 1 IN 1 D), ORAL
     Route: 048
  4. LANSOPRAZOLE [Suspect]
     Indication: ILL-DEFINED DISORDER
     Dosage: 30 MG (30 MG, 1 IN 1 D), ORAL
     Route: 048

REACTIONS (5)
  - ACUTE CORONARY SYNDROME [None]
  - CORONARY ARTERY STENOSIS [None]
  - FIBRIN D DIMER INCREASED [None]
  - PULMONARY EMBOLISM [None]
  - SQUAMOUS CELL CARCINOMA [None]
